FAERS Safety Report 19184425 (Version 1)
Quarter: 2021Q2

REPORT INFORMATION
  Report Type: Spontaneous
  Country: SE (occurrence: SE)
  Receive Date: 20210427
  Receipt Date: 20210427
  Transmission Date: 20210717
  Serious: Yes (Other)
  Sender: FDA-Public Use
  Company Number: SE-SA-2021SA136232

PATIENT
  Age: 49 Year
  Sex: Male

DRUGS (21)
  1. ESOMEPRAZOLE. [Suspect]
     Active Substance: ESOMEPRAZOLE MAGNESIUM
     Dosage: 1 DF, QD (STRENGTH 20 MG )
     Route: 048
     Dates: start: 20210327, end: 20210329
  2. SOLUVITE [Concomitant]
     Dosage: UNK
     Dates: start: 20210324, end: 20210326
  3. ATORVASTATIN [Concomitant]
     Active Substance: ATORVASTATIN
     Dosage: UNK
     Dates: start: 20210324, end: 20210329
  4. PROPOFOL. [Concomitant]
     Active Substance: PROPOFOL
     Dosage: UNK
     Dates: start: 20210326, end: 20210327
  5. OXYCODONE [Concomitant]
     Active Substance: OXYCODONE
     Dosage: UNK
     Dates: start: 20210323
  6. KLEXANE [Suspect]
     Active Substance: ENOXAPARIN
     Indication: THROMBOSIS PROPHYLAXIS
     Dosage: STRENGTH 4000 DOSAGE 0.4
     Route: 058
     Dates: start: 20210325, end: 20210326
  7. CILAXORAL [Concomitant]
     Active Substance: SODIUM PICOSULFATE
     Dosage: UNK
     Dates: start: 20210326
  8. ESOMEPRAZOLE. [Suspect]
     Active Substance: ESOMEPRAZOLE MAGNESIUM
     Dosage: 1 DF, QD (STRENGTH 40 MG )
     Route: 042
     Dates: start: 20210327, end: 20210329
  9. TROMBYL [Concomitant]
     Active Substance: ASPIRIN
     Dosage: UNK
     Dates: start: 20210324, end: 20210326
  10. VITALIPID ADULT [Concomitant]
     Active Substance: ERGOCALCIFEROL\PHYTONADIONE\RETINOL\TOCOPHEROL
     Dosage: UNK
     Dates: start: 20210324, end: 20210326
  11. KABIVEN [Concomitant]
     Active Substance: AMINO ACIDS\ANHYDROUS DEXTROSE\CALCIUM CHLORIDE\MAGNESIUM SULFATE HEPTAHYDRATE\POTASSIUM CHLORIDE\SODIUM ACETATE\SODIUM GLYCEROPHOSPHATE ANHYDROUS\SOYBEAN OIL
     Dosage: UNK
     Dates: start: 20210324, end: 20210326
  12. CLOXACILLIN [Concomitant]
     Active Substance: CLOXACILLIN
     Dosage: UNK
     Dates: start: 20210323, end: 20210326
  13. EFURIX [Concomitant]
     Active Substance: FLUOROURACIL
     Dosage: UNK
     Dates: start: 20210327
  14. PARACETAMOL [Suspect]
     Active Substance: ACETAMINOPHEN
     Indication: PYREXIA
     Dosage: 4 G, QD
     Route: 048
     Dates: start: 20210323, end: 20210329
  15. CEFOTAXIME SODIUM [Suspect]
     Active Substance: CEFOTAXIME SODIUM
     Indication: INFECTION
     Dosage: STRENGTH 1
     Route: 042
     Dates: start: 20210327, end: 20210330
  16. ONDANSETRON [Concomitant]
     Active Substance: ONDANSETRON
     Dosage: UNK
     Dates: start: 20210323
  17. ULTIVA [Concomitant]
     Active Substance: REMIFENTANIL HYDROCHLORIDE
     Dosage: UNK
     Dates: start: 20210326, end: 20210327
  18. PARACETAMOL [Suspect]
     Active Substance: ACETAMINOPHEN
     Indication: PAIN
     Dosage: 4 G, QD
     Route: 042
     Dates: start: 20210323, end: 20210329
  19. NALOXONE [Concomitant]
     Active Substance: NALOXONE
     Dosage: UNK
     Dates: start: 20210327, end: 20210329
  20. MOVICOLON [Concomitant]
     Active Substance: POLYETHYLENE GLYCOL 3350\POTASSIUM CHLORIDE\SODIUM BICARBONATE\SODIUM CHLORIDE
     Dosage: UNK
     Dates: start: 20210327
  21. ADDAVEN [Concomitant]
     Active Substance: ELECTROLYTES NOS\MINERALS
     Dosage: UNK
     Dates: start: 20210324, end: 20210326

REACTIONS (1)
  - Hepatic enzyme increased [Not Recovered/Not Resolved]

NARRATIVE: CASE EVENT DATE: 20210328
